FAERS Safety Report 16306789 (Version 2)
Quarter: 2020Q4

REPORT INFORMATION
  Report Type: Spontaneous
  Country: US (occurrence: US)
  Receive Date: 20190513
  Receipt Date: 20201224
  Transmission Date: 20210113
  Serious: Yes (Other)
  Sender: FDA-Public Use
  Company Number: US-ASTRAZENECA-2019SE63807

PATIENT
  Age: 47 Year
  Sex: Male
  Weight: 120.7 kg

DRUGS (54)
  1. PRILOSEC OTC [Suspect]
     Active Substance: OMEPRAZOLE MAGNESIUM
     Route: 048
     Dates: start: 200401, end: 200401
  2. IBUPROFEN. [Concomitant]
     Active Substance: IBUPROFEN
     Indication: PAIN
     Dates: start: 20150705, end: 20150815
  3. ALBUTEROL. [Concomitant]
     Active Substance: ALBUTEROL
  4. CORTISONE [Concomitant]
     Active Substance: CORTISONE
  5. TEMAZEPAM. [Concomitant]
     Active Substance: TEMAZEPAM
  6. ALPRAZOLAM. [Concomitant]
     Active Substance: ALPRAZOLAM
  7. AMMONIUM LACTATE. [Concomitant]
     Active Substance: AMMONIUM LACTATE
  8. CIPROFLOXACIN. [Concomitant]
     Active Substance: CIPROFLOXACIN
  9. DEXAMETHASONE. [Concomitant]
     Active Substance: DEXAMETHASONE
  10. METHADONE [Concomitant]
     Active Substance: METHADONE HYDROCHLORIDE
  11. ADVAIR HFA [Concomitant]
     Active Substance: FLUTICASONE PROPIONATE\SALMETEROL XINAFOATE
  12. MARCAINE [Concomitant]
     Active Substance: BUPIVACAINE HYDROCHLORIDE
  13. MIRALAX [Concomitant]
     Active Substance: POLYETHYLENE GLYCOL 3350
  14. AMBIEN [Concomitant]
     Active Substance: ZOLPIDEM TARTRATE
  15. COZAAR [Concomitant]
     Active Substance: LOSARTAN POTASSIUM
  16. VIGAMOX [Concomitant]
     Active Substance: MOXIFLOXACIN HYDROCHLORIDE
  17. DIPHENHYDRAMINE. [Concomitant]
     Active Substance: DIPHENHYDRAMINE
  18. NEXIUM [Suspect]
     Active Substance: ESOMEPRAZOLE MAGNESIUM
     Route: 048
     Dates: start: 200401, end: 200401
  19. NEXIUM 24HR [Suspect]
     Active Substance: ESOMEPRAZOLE MAGNESIUM
     Indication: GASTROOESOPHAGEAL REFLUX DISEASE
     Route: 048
     Dates: start: 20090915, end: 20111129
  20. PRILOSEC [Suspect]
     Active Substance: OMEPRAZOLE MAGNESIUM
     Indication: GASTROOESOPHAGEAL REFLUX DISEASE
     Route: 048
     Dates: start: 20111026
  21. OXYCODONE [Concomitant]
     Active Substance: OXYCODONE
  22. CODEINE [Concomitant]
     Active Substance: CODEINE
  23. PHENERGAN [Concomitant]
     Active Substance: PROMETHAZINE HYDROCHLORIDE
  24. TRAVATAN [Concomitant]
     Active Substance: TRAVOPROST
  25. MORPHINE [Concomitant]
     Active Substance: MORPHINE
  26. VALIUM [Concomitant]
     Active Substance: DIAZEPAM
  27. ARISTOCORT [Concomitant]
     Active Substance: TRIAMCINOLONE DIACETATE
  28. PREVACID [Suspect]
     Active Substance: LANSOPRAZOLE
     Indication: GASTROOESOPHAGEAL REFLUX DISEASE
     Route: 065
     Dates: start: 200401, end: 200401
  29. PREVACID [Suspect]
     Active Substance: LANSOPRAZOLE
     Indication: GASTROOESOPHAGEAL REFLUX DISEASE
     Route: 065
     Dates: start: 20090701, end: 20111101
  30. PREVACID IV [Suspect]
     Active Substance: LANSOPRAZOLE
     Route: 065
     Dates: start: 200401, end: 200401
  31. GABAPENTIN. [Concomitant]
     Active Substance: GABAPENTIN
     Indication: PAIN
     Dates: start: 20120508, end: 20171009
  32. EPINEPHRINE. [Concomitant]
     Active Substance: EPINEPHRINE
  33. PREDNISONE. [Concomitant]
     Active Substance: PREDNISONE
  34. LEVETIRACETAM. [Concomitant]
     Active Substance: LEVETIRACETAM
  35. AMOXICILLIN. [Concomitant]
     Active Substance: AMOXICILLIN
  36. PRILOSEC [Suspect]
     Active Substance: OMEPRAZOLE MAGNESIUM
     Indication: GASTROOESOPHAGEAL REFLUX DISEASE
     Route: 048
     Dates: start: 200401, end: 200401
  37. PROMETHAZINE [Concomitant]
     Active Substance: PROMETHAZINE HYDROCHLORIDE
  38. ACYCLOVIR. [Concomitant]
     Active Substance: ACYCLOVIR
  39. CIALIS [Concomitant]
     Active Substance: TADALAFIL
  40. VALACICLOVIR [Concomitant]
     Active Substance: VALACYCLOVIR HYDROCHLORIDE
  41. DROPERIDOL. [Concomitant]
     Active Substance: DROPERIDOL
  42. PRILOSEC [Suspect]
     Active Substance: OMEPRAZOLE MAGNESIUM
     Indication: GASTROOESOPHAGEAL REFLUX DISEASE
     Route: 048
     Dates: start: 19960101, end: 20011129
  43. LISINOPRIL. [Concomitant]
     Active Substance: LISINOPRIL
     Indication: HYPERTENSION
     Dates: start: 20111129, end: 20131107
  44. ONDANSETRON [Concomitant]
     Active Substance: ONDANSETRON
  45. LOSARTAN. [Concomitant]
     Active Substance: LOSARTAN
     Indication: HYPERTENSION
     Dates: start: 20171009
  46. DOXYCYCLINE. [Concomitant]
     Active Substance: DOXYCYCLINE
  47. BRIMONIDINE [Concomitant]
     Active Substance: BRIMONIDINE TARTRATE
  48. INDOMETHACIN. [Concomitant]
     Active Substance: INDOMETHACIN
  49. LEVAQUIN [Concomitant]
     Active Substance: LEVOFLOXACIN
  50. PROCHLORPERAZINE. [Concomitant]
     Active Substance: PROCHLORPERAZINE
  51. AZITHROMYCIN ANHYDROUS. [Concomitant]
     Active Substance: AZITHROMYCIN ANHYDROUS
  52. PRILOSEC [Suspect]
     Active Substance: OMEPRAZOLE MAGNESIUM
     Indication: GASTROOESOPHAGEAL REFLUX DISEASE
     Dosage: GENERIC
     Route: 048
     Dates: start: 20111129
  53. ATROVENT [Concomitant]
     Active Substance: IPRATROPIUM BROMIDE
  54. ANCEF [Concomitant]
     Active Substance: CEFAZOLIN SODIUM

REACTIONS (2)
  - Chronic kidney disease [Not Recovered/Not Resolved]
  - Gastrooesophageal reflux disease [Not Recovered/Not Resolved]

NARRATIVE: CASE EVENT DATE: 2012
